FAERS Safety Report 5904287-5 (Version None)
Quarter: 2008Q4

REPORT INFORMATION
  Report Type: 
  Country: None (occurrence: None)
  Receive Date: 20081001
  Receipt Date: 20080624
  Transmission Date: 20090506
  Serious: No
  Sender: FDA-Public Use
  Company Number: US-BRISTOL-MYERS SQUIBB COMPANY-14238927

PATIENT
  Age: 39 Year
  Sex: Female
  Weight: 100 kg

DRUGS (4)
  1. SPRYCEL [Suspect]
     Indication: CHRONIC MYELOID LEUKAEMIA
     Dates: start: 20080201
  2. PREVACID [Concomitant]
  3. TOPAMAX [Concomitant]
  4. HYDROCHLOROTHIAZIDE [Concomitant]

REACTIONS (5)
  - HYPERCHOLESTEROLAEMIA [None]
  - HYPOCHOLESTEROLAEMIA [None]
  - PRURITUS [None]
  - RASH [None]
  - VOMITING [None]
